FAERS Safety Report 5287535-7 (Version None)
Quarter: 2007Q1

REPORT INFORMATION
  Report Type: 
  Country: None (occurrence: None)
  Receive Date: 20070116
  Receipt Date: 20060928
  Transmission Date: 20070707
  Serious: No
  Sender: FDA-Public Use
  Company Number: 2006SP003457

PATIENT
  Age: 35 Year
  Sex: Female
  Weight: 50.8029 kg

DRUGS (4)
  1. LUNESTA [Suspect]
     Indication: INSOMNIA
     Dosage: 3 MG, HS, ORAL
     Route: 048
     Dates: start: 20060901
  2. REQUIP [Suspect]
     Indication: RESTLESS LEGS SYNDROME
     Dosage: SEE IMAGE
     Dates: start: 20060901, end: 20060901
  3. REQUIP [Suspect]
     Indication: RESTLESS LEGS SYNDROME
     Dosage: SEE IMAGE
     Dates: start: 20060901
  4. XANAX [Concomitant]

REACTIONS (1)
  - MIDDLE INSOMNIA [None]
